FAERS Safety Report 8953571 (Version 2)
Quarter: 2013Q1

REPORT INFORMATION
  Report Type: Spontaneous
  Country: US (occurrence: US)
  Receive Date: 20121206
  Receipt Date: 20130114
  Transmission Date: 20140127
  Serious: No
  Sender: FDA-Public Use
  Company Number: US-PFIZER INC-2012303114

PATIENT
  Age: 76 Year
  Sex: Male
  Weight: 86.62 kg

DRUGS (13)
  1. SUTENT [Suspect]
     Indication: RENAL CANCER
     Dosage: 50 MG, DAILY
     Dates: start: 20121022
  2. SUTENT [Suspect]
     Dosage: UNK
     Dates: start: 2012
  3. LOTENSIN [Concomitant]
     Dosage: UNK
  4. LEVOTHYROXINE [Concomitant]
     Dosage: UNK
  5. TOPROL XL [Concomitant]
     Dosage: UNK
  6. FINASTERIDE [Concomitant]
     Dosage: UNK
  7. MULTIVITAMINS [Concomitant]
  8. DONEPEZIL HYDROCHLORIDE [Concomitant]
     Dosage: UNK
  9. DOXAZOSIN MESILATE [Concomitant]
     Dosage: UNK
  10. ADVAIR [Concomitant]
     Dosage: UNK
  11. CRESTOR [Concomitant]
     Dosage: UNK
  12. PROVENTIL SOLUTION [Concomitant]
     Dosage: AS NEEDED
  13. LIDODERM PATCH [Concomitant]
     Dosage: AS NEEDED

REACTIONS (8)
  - Chest pain [Unknown]
  - Diarrhoea [Unknown]
  - Fatigue [Unknown]
  - Dysgeusia [Unknown]
  - Chills [Unknown]
  - Decreased appetite [Unknown]
  - Weight decreased [Unknown]
  - Pain in jaw [Unknown]
